FAERS Safety Report 8963790 (Version 1)
Quarter: 2012Q4

REPORT INFORMATION
  Report Type: 
  Country: US (occurrence: US)
  Receive Date: 20121213
  Receipt Date: 20121213
  Transmission Date: 20130627
  Serious: No
  Sender: FDA-Public Use
  Company Number: US-BAYER-2012-130625

PATIENT
  Age: 32 Year
  Sex: Male
  Weight: 111 kg

DRUGS (2)
  1. ALEVE CAPLET/TABLET,MIDOL EXTENDED RELIEF CAPLET [Suspect]
     Indication: PAIN RELIEF
     Dosage: 3 DF, UNK
     Route: 048
  2. BABY ASPIRIN [Concomitant]

REACTIONS (1)
  - Incorrect dose administered [None]
